FAERS Safety Report 8439713-3 (Version None)
Quarter: 2012Q2

REPORT INFORMATION
  Report Type: 
  Country: None (occurrence: None)
  Receive Date: 20120611
  Receipt Date: 20120611
  Transmission Date: 20120825
  Serious: Yes (Life-Threatening)
  Sender: FDA-Public Use
  Company Number: None

PATIENT
  Age: 54 Year
  Sex: Female
  Weight: 65.7716 kg

DRUGS (1)
  1. AZITHROMYCIN [Suspect]
     Indication: SINUSITIS
     Dosage: 1 TABLET ONCE EVERY 24 HOUR
     Dates: start: 20120604, end: 20120606

REACTIONS (6)
  - COUGH [None]
  - PHARYNGEAL OEDEMA [None]
  - DYSPHONIA [None]
  - SWOLLEN TONGUE [None]
  - OROPHARYNGEAL PAIN [None]
  - THROAT IRRITATION [None]
